FAERS Safety Report 9914677 (Version 1)
Quarter: 2014Q1

REPORT INFORMATION
  Report Type: Spontaneous
  Country: US (occurrence: US)
  Receive Date: 20140220
  Receipt Date: 20140220
  Transmission Date: 20141002
  Serious: Yes (Hospitalization)
  Sender: FDA-Public Use
  Company Number: US-TEVA-463646USA

PATIENT
  Sex: Male
  Weight: 49.94 kg

DRUGS (2)
  1. QUETIAPINE FUMARATE [Suspect]
     Dosage: 200 MILLIGRAM DAILY;
  2. DULOXETINE [Concomitant]
     Dosage: 40 MILLIGRAM DAILY;

REACTIONS (4)
  - Abnormal behaviour [Unknown]
  - Psychomotor hyperactivity [Unknown]
  - Dizziness [Unknown]
  - Abnormal behaviour [Unknown]
